FAERS Safety Report 6633808-2 (Version None)
Quarter: 2010Q1

REPORT INFORMATION
  Report Type: 
  Country: None (occurrence: None)
  Receive Date: 20100315
  Receipt Date: 20100304
  Transmission Date: 20100710
  Serious: Yes (Hospitalization)
  Sender: FDA-Public Use
  Company Number: US-JNJFOC-20100103075

PATIENT
  Sex: Female
  Weight: 58.51 kg

DRUGS (1)
  1. REMICADE [Suspect]
     Indication: RHEUMATOID ARTHRITIS
     Dosage: FOR 9 YEARS
     Route: 042

REACTIONS (8)
  - ATRIAL SEPTAL DEFECT [None]
  - BRAIN STEM INFARCTION [None]
  - CEREBROVASCULAR ACCIDENT [None]
  - HEMIPARESIS [None]
  - HYPERTENSION [None]
  - HYPOAESTHESIA [None]
  - PARALYSIS [None]
  - SYSTEMIC LUPUS ERYTHEMATOSUS [None]
